FAERS Safety Report 10158981 (Version 1)
Quarter: 2014Q2

REPORT INFORMATION
  Report Type: Spontaneous
  Country: US (occurrence: US)
  Receive Date: 20140508
  Receipt Date: 20140508
  Transmission Date: 20141212
  Serious: No
  Sender: FDA-Public Use
  Company Number: US-BIOGENIDEC-2014BI039972

PATIENT
  Age: 45 Year
  Sex: Female

DRUGS (10)
  1. TECFIDERA [Suspect]
     Indication: MULTIPLE SCLEROSIS
     Dates: start: 201403, end: 2014
  2. TECFIDERA [Suspect]
     Indication: MULTIPLE SCLEROSIS
     Dates: start: 2014, end: 2014
  3. TECFIDERA [Suspect]
     Indication: MULTIPLE SCLEROSIS
     Dates: start: 2014
  4. CALCIUM [Concomitant]
  5. FISH OIL [Concomitant]
  6. LUNESTA [Concomitant]
  7. MIRTAZAPINE [Concomitant]
  8. ZANTAC [Concomitant]
  9. POTASSIUM [Concomitant]
  10. TIZANIDINE [Concomitant]

REACTIONS (3)
  - Underdose [Unknown]
  - Nausea [Not Recovered/Not Resolved]
  - Abdominal discomfort [Not Recovered/Not Resolved]
